FAERS Safety Report 14654283 (Version 1)
Quarter: 2018Q1

REPORT INFORMATION
  Report Type: Spontaneous
  Country: ZA (occurrence: ZA)
  Receive Date: 20180319
  Receipt Date: 20180319
  Transmission Date: 20180509
  Serious: Yes (Hospitalization)
  Sender: FDA-Public Use
  Company Number: PHHY2018ZA044023

PATIENT
  Sex: Male

DRUGS (3)
  1. ZOLPIHEXAL [Suspect]
     Active Substance: ZOLPIDEM TARTRATE
     Indication: SLEEP DISORDER
     Dosage: 10 MG, UNK
     Route: 048
     Dates: start: 201711
  2. SLOW K [Suspect]
     Active Substance: POTASSIUM CHLORIDE
     Indication: BLOOD POTASSIUM ABNORMAL
     Dosage: 600 MG, UNK
     Route: 048
     Dates: start: 201711
  3. TRAMAHEXAL [Suspect]
     Active Substance: TRAMADOL HYDROCHLORIDE
     Indication: PAIN
     Dosage: 150 MG, UNK
     Route: 048
     Dates: start: 201711

REACTIONS (1)
  - Hernia [Unknown]
